FAERS Safety Report 13085536 (Version 3)
Quarter: 2017Q1

REPORT INFORMATION
  Report Type: Spontaneous
  Country: US (occurrence: US)
  Receive Date: 20170104
  Receipt Date: 20170210
  Transmission Date: 20170428
  Serious: Yes (Death, Hospitalization)
  Sender: FDA-Public Use
  Company Number: US-PFIZER INC-2017001051

PATIENT
  Age: 73 Year
  Sex: Male
  Weight: 90.72 kg

DRUGS (6)
  1. SUTENT [Suspect]
     Active Substance: SUNITINIB MALATE
     Dosage: 50 MG DAILY FOR 4 WEEKS AND OFF FOR 2 WEEKS
     Route: 048
     Dates: start: 20160715
  2. NOVOLOG [Concomitant]
     Active Substance: INSULIN ASPART
  3. METOPROLOL. [Concomitant]
     Active Substance: METOPROLOL
  4. SUTENT [Suspect]
     Active Substance: SUNITINIB MALATE
     Dosage: UNK
     Route: 048
     Dates: start: 201604
  5. SUTENT [Suspect]
     Active Substance: SUNITINIB MALATE
     Indication: RENAL CANCER METASTATIC
     Dosage: UNK
     Route: 048
     Dates: start: 20150913
  6. OXYCODONE [Concomitant]
     Active Substance: OXYCODONE

REACTIONS (1)
  - Rectal haemorrhage [Fatal]

NARRATIVE: CASE EVENT DATE: 201612
